FAERS Safety Report 4452611-5 (Version None)
Quarter: 2004Q3

REPORT INFORMATION
  Report Type: 
  Country: None (occurrence: None)
  Receive Date: 20040916
  Receipt Date: 20040902
  Transmission Date: 20050211
  Serious: Yes (Other)
  Sender: FDA-Public Use
  Company Number: 2004063369

PATIENT
  Age: 36 Year
  Sex: Female

DRUGS (1)
  1. DIFLUCAN [Suspect]
     Indication: VAGINAL MYCOSIS
     Dosage: 150 MG (150 MG, 1 IN 1 D), ORAL
     Route: 048
     Dates: start: 20040104, end: 20040109

REACTIONS (3)
  - ABORTION SPONTANEOUS [None]
  - DRUG EXPOSURE DURING PREGNANCY [None]
  - ULTRASOUND ANTENATAL SCREEN ABNORMAL [None]
